FAERS Safety Report 9485760 (Version 1)
Quarter: 2013Q3

REPORT INFORMATION
  Report Type: Spontaneous
  Country: US (occurrence: None)
  Receive Date: 20130827
  Receipt Date: 20130827
  Transmission Date: 20140515
  Serious: No
  Sender: FDA-Public Use
  Company Number: None

PATIENT
  Age: 82 Year
  Sex: Female
  Weight: 93.2 kg

DRUGS (2)
  1. VORICONAZOLE [Suspect]
     Indication: FUNGAL INFECTION
     Route: 048
     Dates: start: 201210, end: 20130813
  2. VORICONAZOLE [Suspect]
     Indication: PRODUCT CONTAMINATION
     Route: 048
     Dates: start: 201210, end: 20130813

REACTIONS (3)
  - Product contamination [None]
  - Product counterfeit [None]
  - Product quality issue [None]
